FAERS Safety Report 18119095 (Version 1)
Quarter: 2020Q3

REPORT INFORMATION
  Report Type: Spontaneous
  Country: US (occurrence: US)
  Receive Date: 20200805
  Receipt Date: 20200805
  Transmission Date: 20201103
  Serious: Yes (Hospitalization)
  Sender: FDA-Public Use
  Company Number: None

PATIENT
  Age: 63 Year
  Sex: Female

DRUGS (21)
  1. METRONIDAZOL [Concomitant]
     Active Substance: METRONIDAZOLE
  2. CEFDINIR. [Concomitant]
     Active Substance: CEFDINIR
  3. LISINOPRIL AND HYDROCHLOROTHIAZIDE [Concomitant]
     Active Substance: HYDROCHLOROTHIAZIDE\LISINOPRIL
  4. MELOXICAM. [Concomitant]
     Active Substance: MELOXICAM
  5. AZITHROMYCIN ANHYDROUS. [Concomitant]
     Active Substance: AZITHROMYCIN ANHYDROUS
  6. MECLIZINE [Concomitant]
     Active Substance: MECLIZINE HYDROCHLORIDE
  7. AMITRIPTYLYN [Concomitant]
  8. LEVALBUTEROL AER [Concomitant]
  9. TRAMADOL HCL [Concomitant]
     Active Substance: TRAMADOL HYDROCHLORIDE
  10. VALACYCLOVIR [Concomitant]
     Active Substance: VALACYCLOVIR HYDROCHLORIDE
  11. BENZONATATE. [Concomitant]
     Active Substance: BENZONATATE
  12. NITROFURANTIN [Concomitant]
     Active Substance: NITROFURANTOIN
  13. CYCLOBENZAPR [Concomitant]
     Active Substance: CYCLOBENZAPRINE
  14. DICLOFENAC [Concomitant]
     Active Substance: DICLOFENAC
  15. TIZANIDINE. [Concomitant]
     Active Substance: TIZANIDINE
  16. LISINOPRIL. [Concomitant]
     Active Substance: LISINOPRIL
  17. PREGABALIN. [Concomitant]
     Active Substance: PREGABALIN
  18. PREMARIN [Concomitant]
     Active Substance: ESTROGENS, CONJUGATED
  19. SPIRIVA [Concomitant]
     Active Substance: TIOTROPIUM BROMIDE MONOHYDRATE
  20. HUMIRA [Suspect]
     Active Substance: ADALIMUMAB
     Indication: RHEUMATOID ARTHRITIS
     Route: 058
     Dates: start: 20200523
  21. METHYLPRED [Concomitant]
     Active Substance: METHYLPREDNISOLONE

REACTIONS (2)
  - Disease recurrence [None]
  - Therapy interrupted [None]

NARRATIVE: CASE EVENT DATE: 20200720
